FAERS Safety Report 7980289-2 (Version None)
Quarter: 2011Q4

REPORT INFORMATION
  Report Type: 
  Country: None (occurrence: None)
  Receive Date: 20111212
  Receipt Date: 20111201
  Transmission Date: 20120403
  Serious: Yes (Hospitalization)
  Sender: FDA-Public Use
  Company Number: 1000025917

PATIENT
  Age: 62 Year
  Sex: Female

DRUGS (3)
  1. VIIBRYD [Suspect]
     Indication: DEPRESSION
     Dosage: 40 MG (40 MG, 1 IN 1 D), ORAL
     Route: 048
     Dates: start: 20110907, end: 20111002
  2. HYDROCHLOROTHIAZIDE [Concomitant]
  3. VIIBRYD [Suspect]
     Indication: DEPRESSION
     Dosage: 10 MG (10 MG, 1 IN 1 D, ORAL)
     Route: 048
     Dates: start: 20110824, end: 20110830

REACTIONS (7)
  - CONDITION AGGRAVATED [None]
  - INSOMNIA [None]
  - DEPRESSION [None]
  - ANXIETY [None]
  - RESTLESSNESS [None]
  - HYPONATRAEMIA [None]
  - DECREASED APPETITE [None]
